FAERS Safety Report 13553748 (Version 1)
Quarter: 2017Q2

REPORT INFORMATION
  Report Type: Spontaneous
  Country: US (occurrence: US)
  Receive Date: 20170517
  Receipt Date: 20170517
  Transmission Date: 20170830
  Serious: Yes (Life-Threatening)
  Sender: FDA-Public Use
  Company Number: US-STANDARD HOMEOPATHIC COMPANY-2020850

PATIENT
  Age: 40 Year
  Sex: Female

DRUGS (1)
  1. COMPLETE ALLERGY 4 KIDS [Suspect]
     Active Substance: HOMEOPATHICS
     Indication: HYPERSENSITIVITY
     Route: 048
     Dates: start: 20170504, end: 20170504

REACTIONS (5)
  - Urticaria [None]
  - Dyspnoea [None]
  - Throat tightness [None]
  - Hypersensitivity [Recovered/Resolved]
  - Swollen tongue [None]

NARRATIVE: CASE EVENT DATE: 20170504
